FAERS Safety Report 5868729-6 (Version None)
Quarter: 2008Q3

REPORT INFORMATION
  Report Type: 
  Country: None (occurrence: None)
  Receive Date: 20080903
  Receipt Date: 20080821
  Transmission Date: 20090109
  Serious: Yes (Hospitalization)
  Sender: FDA-Public Use
  Company Number: US-AMGEN-US293930

PATIENT
  Age: 67 Year
  Sex: Female
  Weight: 98.9 kg

DRUGS (5)
  1. NEUPOGEN [Suspect]
     Indication: CHEMOTHERAPY
     Route: 065
     Dates: start: 20080519
  2. NEULASTA [Suspect]
     Indication: CHEMOTHERAPY
     Route: 065
     Dates: start: 20080628, end: 20080718
  3. CISPLATIN [Suspect]
     Route: 065
     Dates: start: 20080519, end: 20080718
  4. ETOPOSIDE [Suspect]
     Route: 065
     Dates: start: 20080519, end: 20080718
  5. RADIATION THERAPY [Concomitant]
     Dates: start: 20080519, end: 20080625

REACTIONS (2)
  - ANAEMIA [None]
  - THROMBOCYTOPENIA [None]
